FAERS Safety Report 16837434 (Version 2)
Quarter: 2019Q3

REPORT INFORMATION
  Report Type: Spontaneous
  Country: US (occurrence: US)
  Receive Date: 20190923
  Receipt Date: 20190925
  Transmission Date: 20191005
  Serious: No
  Sender: FDA-Public Use
  Company Number: PHEH2019US038954

PATIENT
  Sex: Female

DRUGS (2)
  1. DUREZOL [Suspect]
     Active Substance: DIFLUPREDNATE
     Indication: PRODUCT USED FOR UNKNOWN INDICATION
     Dosage: UNK UNK, TID
     Route: 065
  2. ILEVRO [Suspect]
     Active Substance: NEPAFENAC
     Indication: PRODUCT USED FOR UNKNOWN INDICATION
     Dosage: UNK
     Route: 065

REACTIONS (9)
  - Product packaging issue [Unknown]
  - Asthma [Unknown]
  - Dysgeusia [Unknown]
  - Condition aggravated [Unknown]
  - Foreign body sensation in eyes [Unknown]
  - Incorrect product administration duration [Unknown]
  - Intraocular pressure increased [Not Recovered/Not Resolved]
  - Bronchitis [Unknown]
  - Product label issue [Unknown]
